FAERS Safety Report 14621906 (Version 1)
Quarter: 2018Q1

REPORT INFORMATION
  Report Type: Spontaneous
  Country: GB (occurrence: GB)
  Receive Date: 20180310
  Receipt Date: 20180310
  Transmission Date: 20180509
  Serious: Yes (Other)
  Sender: FDA-Public Use
  Company Number: GB-AUROBINDO-AUR-APL-2018-013039

PATIENT
  Sex: Male

DRUGS (2)
  1. LAMOTRIGINE. [Suspect]
     Active Substance: LAMOTRIGINE
     Indication: PRODUCT USED FOR UNKNOWN INDICATION
     Dosage: 100 MG, 1D
     Route: 065
     Dates: start: 201705
  2. DEPAKOTE [Interacting]
     Active Substance: DIVALPROEX SODIUM
     Indication: PRODUCT USED FOR UNKNOWN INDICATION
     Dosage: UNK ()

REACTIONS (4)
  - Deafness [Not Recovered/Not Resolved]
  - Drug interaction [Unknown]
  - Conjunctivitis [Recovered/Resolved]
  - Tinnitus [Not Recovered/Not Resolved]
